FAERS Safety Report 15485279 (Version 1)
Quarter: 2018Q4

REPORT INFORMATION
  Report Type: Spontaneous
  Country: US (occurrence: US)
  Receive Date: 20181010
  Receipt Date: 20181010
  Transmission Date: 20190205
  Serious: No
  Sender: FDA-Public Use
  Company Number: US-ROCHE-2134391

PATIENT
  Sex: Female

DRUGS (15)
  1. ESBRIET [Suspect]
     Active Substance: PIRFENIDONE
     Indication: UPPER-AIRWAY COUGH SYNDROME
     Dosage: ONE 267 MG TABLETS THRICE A DAY (TID) FOR ONE WEEK, THEN TWO 267 TABLETS TID FOLLOWED BY THREE 267 M
     Route: 048
     Dates: start: 20180530
  2. AZITHROMYCIN ANHYDROUS. [Concomitant]
     Active Substance: AZITHROMYCIN ANHYDROUS
     Route: 065
  3. PREDNISONE. [Concomitant]
     Active Substance: PREDNISONE
     Route: 065
  4. MONTELUKAST [Concomitant]
     Active Substance: MONTELUKAST SODIUM
     Route: 065
  5. FLUOXETINE HCL [Concomitant]
     Active Substance: FLUOXETINE HYDROCHLORIDE
     Route: 065
  6. LORAZEPAM. [Concomitant]
     Active Substance: LORAZEPAM
     Route: 065
  7. SENNA [Concomitant]
     Active Substance: SENNA LEAF\SENNOSIDES\SENNOSIDES A AND B
     Route: 065
  8. ACYCLOVIR. [Concomitant]
     Active Substance: ACYCLOVIR
     Route: 065
  9. CLOPIDOGREL [Concomitant]
     Active Substance: CLOPIDOGREL BISULFATE
     Route: 065
  10. IPRATROPIUM [Concomitant]
     Active Substance: IPRATROPIUM
     Dosage: 0.5-2.5
     Route: 065
  11. SIMVASTATIN. [Concomitant]
     Active Substance: SIMVASTATIN
     Route: 065
  12. ZIRGAN [Concomitant]
     Active Substance: GANCICLOVIR
     Route: 065
  13. CELECOXIB. [Concomitant]
     Active Substance: CELECOXIB
     Route: 065
  14. FLUTICASONE. [Concomitant]
     Active Substance: FLUTICASONE
     Dosage: 50MCG/AC
     Route: 065
  15. TRIFLURIDINE. [Concomitant]
     Active Substance: TRIFLURIDINE
     Route: 065

REACTIONS (4)
  - Musculoskeletal pain [Not Recovered/Not Resolved]
  - Memory impairment [Unknown]
  - Limb injury [Not Recovered/Not Resolved]
  - Anxiety [Not Recovered/Not Resolved]
